FAERS Safety Report 5706187-2 (Version None)
Quarter: 2008Q2

REPORT INFORMATION
  Report Type: 
  Country: None (occurrence: None)
  Receive Date: 20080411
  Receipt Date: 20080403
  Transmission Date: 20081010
  Serious: Yes (Hospitalization)
  Sender: FDA-Public Use
  Company Number: WAES 0802USA05568

PATIENT
  Age: 52 Year
  Sex: Male

DRUGS (3)
  1. TAB MK-0431 [Suspect]
     Indication: TYPE 2 DIABETES MELLITUS
     Dosage: 100 MG/DAILY PO
     Route: 048
     Dates: start: 20080114, end: 20080219
  2. TAB MK-0431 [Suspect]
     Indication: TYPE 2 DIABETES MELLITUS
     Dosage: 100 MG/DAILY PO
     Route: 048
     Dates: start: 20080221
  3. BETAMETHASONE [Concomitant]

REACTIONS (2)
  - HYPOGLYCAEMIA [None]
  - NO THERAPEUTIC RESPONSE [None]
